FAERS Safety Report 9610504 (Version 1)
Quarter: 2013Q4

REPORT INFORMATION
  Report Type: Spontaneous
  Country: GB (occurrence: GB)
  Receive Date: 20131009
  Receipt Date: 20131009
  Transmission Date: 20140711
  Serious: Yes (Other)
  Sender: FDA-Public Use
  Company Number: GB-BAYER-2013-120884

PATIENT
  Sex: Female

DRUGS (1)
  1. BETAFERON [Suspect]
     Dosage: 250 ?G, ALTERNATIVE WEEK

REACTIONS (4)
  - Gastroenteritis [None]
  - Drug dose omission [None]
  - Malaise [None]
  - Inappropriate schedule of drug administration [None]
